FAERS Safety Report 15734120 (Version 1)
Quarter: 2018Q4

REPORT INFORMATION
  Report Type: Spontaneous
  Country: US (occurrence: US)
  Receive Date: 20181203
  Receipt Date: 20181203
  Transmission Date: 20190205
  Serious: Yes (Hospitalization)
  Sender: FDA-Public Use
  Company Number: None

PATIENT
  Age: 8 Year
  Sex: Female

DRUGS (6)
  1. TOBI PODHALER [Concomitant]
     Active Substance: TOBRAMYCIN
  2. SODIUM CHLORIDE. [Concomitant]
     Active Substance: SODIUM CHLORIDE
  3. CAYSTON [Concomitant]
     Active Substance: AZTREONAM
  4. ALTERA HANDSET [Concomitant]
  5. PULMOZYME [Suspect]
     Active Substance: DORNASE ALFA
     Indication: CYSTIC FIBROSIS
     Dosage: ?          OTHER DOSE:2.5/2.5 MG/ML;?
     Route: 048
     Dates: start: 20150824
  6. AQUADEKS [Concomitant]
     Active Substance: MINERALS\VITAMINS

REACTIONS (1)
  - Cystic fibrosis [None]

NARRATIVE: CASE EVENT DATE: 20181113
